FAERS Safety Report 6846881-3 (Version None)
Quarter: 2010Q3

REPORT INFORMATION
  Report Type: 
  Country: None (occurrence: None)
  Receive Date: 20100715
  Receipt Date: 20070925
  Transmission Date: 20110219
  Serious: No
  Sender: FDA-Public Use
  Company Number: US-PFIZER INC-2007080199

PATIENT
  Sex: Female
  Weight: 81.6 kg

DRUGS (6)
  1. CHANTIX [Suspect]
     Indication: SMOKING CESSATION THERAPY
     Route: 048
     Dates: start: 20070911
  2. LAMICTAL [Concomitant]
  3. LITHIUM [Concomitant]
  4. TOPAMAX [Concomitant]
  5. ACARBOSE [Concomitant]
  6. ORAL CONTRACEPTIVE NOS [Concomitant]

REACTIONS (2)
  - NAUSEA [None]
  - VOMITING [None]
